FAERS Safety Report 15482571 (Version 3)
Quarter: 2018Q4

REPORT INFORMATION
  Report Type: Spontaneous
  Country: NP (occurrence: NP)
  Receive Date: 20181010
  Receipt Date: 20181109
  Transmission Date: 20190205
  Serious: Yes (Hospitalization, Other)
  Sender: FDA-Public Use
  Company Number: NP-PFIZER INC-2018408369

PATIENT
  Age: 15 Year
  Sex: Female

DRUGS (3)
  1. PANTOPRAZOLE [Suspect]
     Active Substance: PANTOPRAZOLE
     Dosage: UNK
  2. DICLOFENAC SODIUM. [Suspect]
     Active Substance: DICLOFENAC SODIUM
     Dosage: UNK
  3. HYOSCINE HYDROBROMIDE [Suspect]
     Active Substance: SCOPOLAMINE
     Dosage: UNK

REACTIONS (1)
  - Porphyria acute [Recovered/Resolved]
